FAERS Safety Report 19354777 (Version 3)
Quarter: 2021Q3

REPORT INFORMATION
  Report Type: Report from Study
  Country: BR (occurrence: BR)
  Receive Date: 20210602
  Receipt Date: 20210802
  Transmission Date: 20211014
  Serious: Yes (Other)
  Sender: FDA-Public Use
  Company Number: BR-UCBSA-2021026243

PATIENT
  Age: 31 Year
  Sex: Female
  Weight: 56 kg

DRUGS (2)
  1. CERTOLIZUMAB PEGOL [Suspect]
     Active Substance: CERTOLIZUMAB PEGOL
     Indication: PSORIATIC ARTHROPATHY
     Dosage: 200 MILLIGRAM, EV 15 DAYS
     Route: 058
     Dates: start: 202101, end: 202103
  2. ISONIAZID. [Concomitant]
     Active Substance: ISONIAZID
     Indication: INTERFERON GAMMA RELEASE ASSAY
     Dosage: 100 MILLIGRAM, ONCE DAILY (QD)
     Dates: start: 202105

REACTIONS (1)
  - Interferon gamma release assay positive [Recovering/Resolving]

NARRATIVE: CASE EVENT DATE: 202104
